FAERS Safety Report 14830952 (Version 3)
Quarter: 2022Q1

REPORT INFORMATION
  Report Type: Report from Study
  Country: BR (occurrence: BR)
  Receive Date: 20180430
  Receipt Date: 20220106
  Transmission Date: 20220424
  Serious: Yes (Hospitalization, Other)
  Sender: FDA-Public Use
  Company Number: PHHY2018BR071589

PATIENT
  Age: 36 Year
  Sex: Female
  Weight: 75 kg

DRUGS (6)
  1. COSENTYX [Suspect]
     Active Substance: SECUKINUMAB
     Indication: Psoriatic arthropathy
     Dosage: 300 MG (PENS OF 150 MG), QMO
     Route: 058
     Dates: start: 20171214
  2. COSENTYX [Suspect]
     Active Substance: SECUKINUMAB
     Indication: Psoriasis
     Dosage: UNK
     Route: 065
     Dates: start: 20211228
  3. METHOTREXATE [Concomitant]
     Active Substance: METHOTREXATE
     Indication: Psoriatic arthropathy
     Dosage: 1 DF, QW
     Route: 030
     Dates: start: 201702
  4. ENALAPRIL [Concomitant]
     Active Substance: ENALAPRIL
     Indication: Hypertension
     Dosage: 4 DF, QD
     Route: 048
     Dates: start: 2016
  5. QUETIAPINE [Concomitant]
     Active Substance: QUETIAPINE
     Indication: Affective disorder
     Dosage: 4 DF, QD
     Route: 048
     Dates: start: 201711
  6. VALPROIC ACID [Concomitant]
     Active Substance: VALPROIC ACID
     Indication: Psoriatic arthropathy
     Dosage: 3 DF, QD
     Route: 048
     Dates: start: 20180415

REACTIONS (44)
  - Gait disturbance [Unknown]
  - Movement disorder [Unknown]
  - Hypoaesthesia [Unknown]
  - Intellectual disability [Unknown]
  - Asthenia [Unknown]
  - Nasopharyngitis [Unknown]
  - Headache [Not Recovered/Not Resolved]
  - Vision blurred [Not Recovered/Not Resolved]
  - Feeling abnormal [Unknown]
  - Epilepsy [Recovered/Resolved]
  - Skin burning sensation [Not Recovered/Not Resolved]
  - Feeling hot [Not Recovered/Not Resolved]
  - Shock symptom [Not Recovered/Not Resolved]
  - Fear [Recovering/Resolving]
  - Sluggishness [Recovering/Resolving]
  - Aphasia [Recovering/Resolving]
  - Sensory loss [Recovering/Resolving]
  - Arthritis [Recovered/Resolved]
  - Dizziness [Unknown]
  - Pain [Unknown]
  - Psoriasis [Not Recovered/Not Resolved]
  - Condition aggravated [Unknown]
  - Pruritus [Not Recovered/Not Resolved]
  - Back injury [Not Recovered/Not Resolved]
  - Limb injury [Not Recovered/Not Resolved]
  - Injury [Not Recovered/Not Resolved]
  - Skin injury [Not Recovered/Not Resolved]
  - Face injury [Not Recovered/Not Resolved]
  - Sensitive skin [Not Recovered/Not Resolved]
  - Head injury [Not Recovered/Not Resolved]
  - Exostosis [Not Recovered/Not Resolved]
  - Osteoarthritis [Not Recovered/Not Resolved]
  - Spinal pain [Not Recovered/Not Resolved]
  - Abdominal pain [Not Recovered/Not Resolved]
  - Haemangioma of bone [Not Recovered/Not Resolved]
  - Degenerative bone disease [Not Recovered/Not Resolved]
  - Intervertebral disc disorder [Not Recovered/Not Resolved]
  - Intervertebral disc protrusion [Not Recovered/Not Resolved]
  - Spinal osteoarthritis [Not Recovered/Not Resolved]
  - Skin exfoliation [Not Recovered/Not Resolved]
  - Back pain [Not Recovered/Not Resolved]
  - Arthralgia [Not Recovered/Not Resolved]
  - Disease progression [Not Recovered/Not Resolved]
  - Therapeutic product effect delayed [Unknown]

NARRATIVE: CASE EVENT DATE: 20180413
